FAERS Safety Report 8502018 (Version 2)
Quarter: 2014Q4

REPORT INFORMATION
  Report Type: Spontaneous
  Country: US (occurrence: None)
  Receive Date: 20120404
  Receipt Date: 20141010
  Transmission Date: 20150529
  Serious: Yes (Hospitalization, Other)
  Sender: FDA-Public Use
  Company Number: ADR-2010-8649

PATIENT
  Sex: Male

DRUGS (1)
  1. BACLOFEN INTRATHECAL [Suspect]
     Active Substance: BACLOFEN
     Indication: MUSCLE SPASTICITY
     Dosage: UNK MCG, DAILY, INTRATH

REACTIONS (8)
  - Device connection issue [None]
  - Device dislocation [None]
  - Incorrect route of drug administration [None]
  - Abnormal behaviour [None]
  - Medical device complication [None]
  - General physical health deterioration [None]
  - Scar [None]
  - Nervous system disorder [None]
